FAERS Safety Report 12854459 (Version 1)
Quarter: 2016Q4

REPORT INFORMATION
  Report Type: Spontaneous
  Country: US (occurrence: US)
  Receive Date: 20161017
  Receipt Date: 20161017
  Transmission Date: 20170207
  Serious: Yes (Other)
  Sender: FDA-Public Use
  Company Number: ALCN2016US006862

PATIENT
  Age: 16 Month
  Sex: Male

DRUGS (9)
  1. CIPROFLOXACIN HCL/DEXAMETHASONE [Suspect]
     Active Substance: CIPROFLOXACIN HYDROCHLORIDE\DEXAMETHASONE
     Indication: CELLULITIS
  2. AMOXICILLIN CLAVULANIC ACID [Suspect]
     Active Substance: AMOXICILLIN\CLAVULANIC ACID
     Indication: POSTOPERATIVE CARE
     Dosage: UNK
     Route: 048
  3. CIPROFLOXACIN. [Suspect]
     Active Substance: CIPROFLOXACIN
     Indication: CELLULITIS
  4. CIPROFLOXACIN HCL/DEXAMETHASONE [Suspect]
     Active Substance: CIPROFLOXACIN HYDROCHLORIDE\DEXAMETHASONE
     Indication: OTITIS EXTERNA
     Dosage: UNK
     Route: 001
  5. CLINDAMYCIN. [Suspect]
     Active Substance: CLINDAMYCIN
     Indication: CELLULITIS
  6. TRIMETOPRIM SULFAMETOXAZOL [Suspect]
     Active Substance: SULFAMETHOXAZOLE\TRIMETHOPRIM
     Indication: POSTOPERATIVE CARE
     Dosage: UNK
     Route: 042
  7. CIPROFLOXACIN. [Suspect]
     Active Substance: CIPROFLOXACIN
     Indication: OTITIS EXTERNA
     Dosage: UNK
     Route: 048
  8. CLINDAMYCIN. [Suspect]
     Active Substance: CLINDAMYCIN
     Indication: OTITIS EXTERNA
     Dosage: UNK
     Route: 048
  9. AMPICILLIN W/SULBACTAM [Suspect]
     Active Substance: AMPICILLIN SODIUM\SULBACTAM SODIUM
     Indication: POSTOPERATIVE CARE
     Dosage: UNK
     Route: 042

REACTIONS (4)
  - Otorrhoea [Recovered/Resolved]
  - Condition aggravated [Recovered/Resolved]
  - Swelling face [Recovered/Resolved]
  - Excessive granulation tissue [Recovered/Resolved]
